FAERS Safety Report 20561211 (Version 1)
Quarter: 2022Q1

REPORT INFORMATION
  Report Type: Spontaneous
  Country: US (occurrence: None)
  Receive Date: 20220306
  Receipt Date: 20220306
  Transmission Date: 20220423
  Serious: No
  Sender: FDA-Public Use
  Company Number: None

PATIENT
  Age: 24 Year
  Sex: Female

DRUGS (8)
  1. NEXPLANON [Suspect]
     Active Substance: ETONOGESTREL
  2. Birthcontrol [Concomitant]
  3. LYRICA [Concomitant]
     Active Substance: PREGABALIN
  4. ELAVIL [Concomitant]
     Active Substance: AMITRIPTYLINE HYDROCHLORIDE
  5. PANTOPRAZOLE SODIUM [Concomitant]
     Active Substance: PANTOPRAZOLE SODIUM
  6. VITAMIN C [Concomitant]
     Active Substance: ASCORBIC ACID
  7. VITAMIN D NOS [Concomitant]
     Active Substance: VITAMIN D NOS
  8. DESLORATADINE [Concomitant]
     Active Substance: DESLORATADINE

REACTIONS (3)
  - Heavy menstrual bleeding [None]
  - Epistaxis [None]
  - Acne [None]

NARRATIVE: CASE EVENT DATE: 20210901
